FAERS Safety Report 10165975 (Version 1)
Quarter: 2014Q2

REPORT INFORMATION
  Report Type: Spontaneous
  Country: US (occurrence: US)
  Receive Date: 20140511
  Receipt Date: 20140511
  Transmission Date: 20141212
  Serious: No
  Sender: FDA-Public Use
  Company Number: US-HORIZON-DUE-0022-2014

PATIENT
  Age: 50 Year
  Sex: Female

DRUGS (9)
  1. DUEXIS [Suspect]
     Indication: EPICONDYLITIS
     Dosage: 1 TABLET EVERY 8 HOURS AS NEEDED
     Dates: start: 20140308
  2. ZOCOR [Concomitant]
  3. PROTONIX [Concomitant]
  4. WELLBUTRIN [Concomitant]
  5. OTC MULTIVITAMIN [Concomitant]
  6. CALCIUM [Concomitant]
  7. BABY ASA [Concomitant]
  8. VITAMIN C [Concomitant]
  9. FISH OIL [Concomitant]

REACTIONS (1)
  - Joint swelling [Unknown]
